FAERS Safety Report 11089457 (Version 2)
Quarter: 2015Q2

REPORT INFORMATION
  Report Type: Spontaneous
  Country: US (occurrence: US)
  Receive Date: 20150505
  Receipt Date: 20150527
  Transmission Date: 20150821
  Serious: Yes (Other)
  Sender: FDA-Public Use
  Company Number: US-ENDO PHARMACEUTICALS INC.-2015-000684

PATIENT
  Age: 53 Year
  Sex: Male

DRUGS (2)
  1. ALLOPURINOL TABLETS 100MG [Suspect]
     Active Substance: ALLOPURINOL
     Route: 065
     Dates: start: 20150419
  2. ALLOPURINOL TABLETS 100MG [Suspect]
     Active Substance: ALLOPURINOL
     Indication: GOUT
     Route: 065
     Dates: start: 201404, end: 20150419

REACTIONS (9)
  - Liver disorder [Unknown]
  - Back pain [Recovered/Resolved]
  - Pyrexia [Recovered/Resolved]
  - Hepatic steatosis [Unknown]
  - Drug ineffective [Not Recovered/Not Resolved]
  - Intentional product use issue [Not Recovered/Not Resolved]
  - Muscle strain [Recovered/Resolved]
  - Wrong technique in drug usage process [Not Recovered/Not Resolved]
  - Serum ferritin increased [Unknown]

NARRATIVE: CASE EVENT DATE: 2015
